FAERS Safety Report 7736840-0 (Version None)
Quarter: 2011Q3

REPORT INFORMATION
  Report Type: 
  Country: None (occurrence: None)
  Receive Date: 20110908
  Receipt Date: 20110908
  Transmission Date: 20111222
  Serious: No
  Sender: FDA-Public Use
  Company Number: None

PATIENT
  Age: 73 Year
  Sex: Male
  Weight: 77.11 kg

DRUGS (2)
  1. LEVAQUIN [Concomitant]
     Indication: SINUSITIS
     Dosage: 500 MG
     Route: 048
  2. DECADRON [Suspect]
     Indication: EAR INFECTION
     Dosage: 1 MG
     Route: 030
     Dates: start: 20110524, end: 20110524

REACTIONS (5)
  - PARAESTHESIA [None]
  - OEDEMA PERIPHERAL [None]
  - HYPOAESTHESIA [None]
  - RESPIRATORY DISORDER [None]
  - JOINT SWELLING [None]
